FAERS Safety Report 4424747-6 (Version None)
Quarter: 2004Q3

REPORT INFORMATION
  Report Type: 
  Country: None (occurrence: None)
  Receive Date: 20040805
  Receipt Date: 20040728
  Transmission Date: 20050211
  Serious: Yes (Life-Threatening)
  Sender: FDA-Public Use
  Company Number: 2004-07-1551

PATIENT
  Age: 72 Year
  Sex: Male

DRUGS (3)
  1. FLUTAMIDE [Suspect]
     Indication: PROSTATE CANCER
     Dosage: 375 MG DAILY ORAL
     Route: 048
     Dates: start: 20040501
  2. CILOSTAZOL [Concomitant]
  3. ENALAPRIL MALEATE [Concomitant]

REACTIONS (1)
  - INTERSTITIAL LUNG DISEASE [None]
